FAERS Safety Report 8204954-7 (Version None)
Quarter: 2012Q1

REPORT INFORMATION
  Report Type: 
  Country: None (occurrence: None)
  Receive Date: 20120313
  Receipt Date: 20120306
  Transmission Date: 20120608
  Serious: No
  Sender: FDA-Public Use
  Company Number: US-PFIZER INC-2012052607

PATIENT
  Sex: Female

DRUGS (1)
  1. LO/OVRAL-28 [Suspect]
     Dosage: UNK

REACTIONS (5)
  - MUSCLE SPASMS [None]
  - MOOD SWINGS [None]
  - BREAST TENDERNESS [None]
  - MENSTRUAL DISORDER [None]
  - PRODUCT QUALITY ISSUE [None]
